FAERS Safety Report 8779463 (Version 3)
Quarter: 2012Q4

REPORT INFORMATION
  Report Type: 
  Country: US (occurrence: US)
  Receive Date: 20120912
  Receipt Date: 20120928
  Transmission Date: 20130627
  Serious: No
  Sender: FDA-Public Use
  Company Number: US-BAYER-2012-094782

PATIENT
  Age: 24 Year
  Sex: Female

DRUGS (1)
  1. MIRENA [Suspect]
     Indication: CONTRACEPTION
     Dosage: 20 mcg/24hr, CONT
     Route: 015
     Dates: start: 2007

REACTIONS (7)
  - Complication of device removal [None]
  - Acne [None]
  - Abdominal pain [None]
  - Depression [None]
  - Frustration [None]
  - Abdominal distension [None]
  - Back pain [None]
